FAERS Safety Report 9299575 (Version 2)
Quarter: 2013Q2

REPORT INFORMATION
  Report Type: Spontaneous
  Country: US (occurrence: US)
  Receive Date: 20130521
  Receipt Date: 20130613
  Transmission Date: 20140414
  Serious: Yes (Hospitalization)
  Sender: FDA-Public Use
  Company Number: US-BIOGENIDEC-2013BI043769

PATIENT
  Age: 50 Year
  Sex: Female
  Weight: 58 kg

DRUGS (12)
  1. TYSABRI [Suspect]
     Indication: MULTIPLE SCLEROSIS
     Route: 042
     Dates: start: 20130122, end: 20130402
  2. ZOLPIDEM TARTRATE [Concomitant]
     Route: 048
  3. ALPRAZOLAM [Concomitant]
     Route: 048
  4. NORCO [Concomitant]
     Route: 048
  5. NORCO [Concomitant]
     Route: 048
  6. PROMETHAZINE HCL [Concomitant]
     Route: 048
  7. VENLAFAXINE HCL [Concomitant]
     Route: 048
  8. TEGRETOL XR [Concomitant]
     Route: 048
  9. STROVITE ADVANCE [Concomitant]
  10. NICOTINE PATCH [Concomitant]
     Route: 062
  11. VITAMIN D [Concomitant]
     Route: 048
  12. CALCIUM ACETATE [Concomitant]
     Route: 048

REACTIONS (3)
  - Multiple sclerosis relapse [Unknown]
  - Drug ineffective [Unknown]
  - Thrombocytopenia [Unknown]
